FAERS Safety Report 4950216-0 (Version None)
Quarter: 2006Q1

REPORT INFORMATION
  Report Type: 
  Country: None (occurrence: None)
  Receive Date: 20060322
  Receipt Date: 20060307
  Transmission Date: 20060701
  Serious: Yes (Other)
  Sender: FDA-Public Use
  Company Number: US-AMGEN-STX171500

PATIENT
  Age: 45 Year
  Sex: Female

DRUGS (8)
  1. ENBREL [Suspect]
     Indication: RHEUMATOID ARTHRITIS
     Route: 058
     Dates: start: 20050419, end: 20060303
  2. INDOCIN [Concomitant]
     Route: 048
     Dates: start: 20040701
  3. CLONAZEPAM [Concomitant]
     Route: 048
  4. ZONEGRAN [Concomitant]
  5. DURAGESIC-100 [Concomitant]
     Route: 062
  6. PROTONIX [Concomitant]
  7. FOLIC ACID [Concomitant]
     Route: 048
  8. TIZANIDINE HCL [Concomitant]

REACTIONS (4)
  - APHASIA [None]
  - DYSKINESIA [None]
  - HYPOAESTHESIA [None]
  - PARAESTHESIA [None]
